FAERS Safety Report 4755522-0 (Version None)
Quarter: 2005Q3

REPORT INFORMATION
  Report Type: 
  Country: None (occurrence: None)
  Receive Date: 20050830
  Receipt Date: 20050504
  Transmission Date: 20060218
  Serious: Yes (Hospitalization, Other)
  Sender: FDA-Public Use
  Company Number: US-BRISTOL-MYERS SQUIBB COMPANY-12956702

PATIENT
  Age: 26 Year
  Sex: Male
  Weight: 74 kg

DRUGS (3)
  1. ARIPIPRAZOLE [Suspect]
     Indication: SCHIZOPHRENIA, UNDIFFERENTIATED TYPE
     Dosage: 15 MG 5/25 TO 5/27/04, 30 MG QD 5/28/04/ TO 6/18/04, THEN 15 MG QD TO DISCHARGE (DATE NOT PROVIDED)
     Route: 048
     Dates: start: 20040525
  2. LORAZEPAM [Concomitant]
  3. BENZTROPINE [Concomitant]

REACTIONS (3)
  - COGWHEEL RIGIDITY [None]
  - DROOLING [None]
  - DYSPHAGIA [None]
